FAERS Safety Report 4551605-9 (Version None)
Quarter: 2005Q1

REPORT INFORMATION
  Report Type: 
  Country: None (occurrence: None)
  Receive Date: 20050113
  Receipt Date: 20050106
  Transmission Date: 20050727
  Serious: Yes (Life-Threatening)
  Sender: FDA-Public Use
  Company Number: US-BRISTOL-MYERS SQUIBB COMPANY-12819066

PATIENT
  Age: 51 Year
  Sex: Male

DRUGS (7)
  1. ATAZANAVIR [Suspect]
     Indication: HIV INFECTION
     Route: 048
     Dates: start: 20040201, end: 20041201
  2. RITONAVIR [Suspect]
     Indication: HIV INFECTION
     Route: 048
     Dates: start: 20040201, end: 20041201
  3. PROVIGIL [Suspect]
     Indication: SLEEP APNOEA SYNDROME
     Route: 048
  4. PROVIGIL [Suspect]
     Indication: SOMNOLENCE
     Route: 048
  5. TENOFOVIR [Concomitant]
     Indication: HIV INFECTION
  6. LAMIVUDINE [Concomitant]
     Indication: HIV INFECTION
  7. VERAPAMIL [Concomitant]

REACTIONS (1)
  - VENTRICULAR TACHYCARDIA [None]
